FAERS Safety Report 8133797-8 (Version None)
Quarter: 2012Q1

REPORT INFORMATION
  Report Type: 
  Country: None (occurrence: None)
  Receive Date: 20120213
  Receipt Date: 20120213
  Transmission Date: 20120608
  Serious: Yes (Life-Threatening, Hospitalization)
  Sender: FDA-Public Use
  Company Number: None

PATIENT
  Sex: Female
  Weight: 52.163 kg

DRUGS (2)
  1. FOSAMAX [Suspect]
     Indication: OSTEOPOROSIS
     Dosage: 70MG ?
     Route: 048
     Dates: start: 20020315, end: 20070315
  2. FOSAMAX [Suspect]
     Indication: OSTEOPENIA
     Dosage: 70MG ?
     Route: 048
     Dates: start: 20020315, end: 20070315

REACTIONS (5)
  - FALL [None]
  - FEMUR FRACTURE [None]
  - OSTEOPOROSIS [None]
  - OSTEOPENIA [None]
  - CONDITION AGGRAVATED [None]
